FAERS Safety Report 11771249 (Version 7)
Quarter: 2016Q3

REPORT INFORMATION
  Report Type: Spontaneous
  Country: ES (occurrence: ES)
  Receive Date: 20151124
  Receipt Date: 20160902
  Transmission Date: 20161109
  Serious: Yes (Other)
  Sender: FDA-Public Use
  Company Number: ES-AMGEN-ESPSP2015117753

PATIENT
  Age: 50 Year
  Sex: Female

DRUGS (21)
  1. INACID [Concomitant]
     Active Substance: INDOMETHACIN
     Dosage: 3 TABLETS/DAY (EVERY 24 HOURS)
  2. OMEPRAZOLE. [Concomitant]
     Active Substance: OMEPRAZOLE
     Indication: PROPHYLAXIS
     Dosage: 1 DF, 1X/DAY
  3. URBASON [Concomitant]
     Active Substance: METHYLPREDNISOLONE
     Dosage: 4 MG (1 TABLET), PER DAY
  4. URBASON [Concomitant]
     Active Substance: METHYLPREDNISOLONE
     Dosage: 4 MG (1 TABLET), PER DAY
  5. OMEPRAZOLE. [Concomitant]
     Active Substance: OMEPRAZOLE
     Dosage: 1 DF, 1X/DAY
  6. URBASON [Concomitant]
     Active Substance: METHYLPREDNISOLONE
     Indication: RHEUMATOID ARTHRITIS
     Dosage: 4 MG (1 TABLET), PER DAY
  7. PAROXETINE. [Concomitant]
     Active Substance: PAROXETINE
     Dosage: 1 DF (TABLET), PER DAY
  8. ENBREL [Suspect]
     Active Substance: ETANERCEPT
     Dosage: 50 MG, UNK
     Route: 058
     Dates: end: 2016
  9. OMEPRAZOLE. [Concomitant]
     Active Substance: OMEPRAZOLE
     Dosage: 1 DF, 1X/DAY
  10. INACID [Concomitant]
     Active Substance: INDOMETHACIN
     Indication: RHEUMATOID ARTHRITIS
     Dosage: 1 DF (TABLET), PER DAY
  11. PAROXETINE. [Concomitant]
     Active Substance: PAROXETINE
     Dosage: 1 DF (TABLET), PER DAY (EVERY 24 HOURS)
  12. PAROXETINE. [Concomitant]
     Active Substance: PAROXETINE
     Dosage: 1 DF (TABLET), PER DAY (EVERY 24 HOURS)
  13. OMEPRAZOLE. [Concomitant]
     Active Substance: OMEPRAZOLE
     Dosage: 1 DF, 1X/DAY
  14. ENBREL [Suspect]
     Active Substance: ETANERCEPT
     Indication: RHEUMATOID ARTHRITIS
     Dosage: 50 MG, UNK
     Route: 058
     Dates: start: 20150901, end: 20151102
  15. INACID [Concomitant]
     Active Substance: INDOMETHACIN
     Dosage: 3 TABLETS/DAY (EVERY 24 HOURS)
  16. PAROXETINE. [Concomitant]
     Active Substance: PAROXETINE
     Indication: ANTIDEPRESSANT THERAPY
     Dosage: 1 DF (TABLET), PER DAY
  17. PAROXETINE. [Concomitant]
     Active Substance: PAROXETINE
     Dosage: 1 DF (TABLET), PER DAY
  18. OMEPRAZOLE. [Concomitant]
     Active Substance: OMEPRAZOLE
     Dosage: 1 DF, 1X/DAY
  19. HUMIRA [Suspect]
     Active Substance: ADALIMUMAB
     Indication: PRODUCT USED FOR UNKNOWN INDICATION
     Dosage: UNK
     Route: 065
     Dates: start: 201606
  20. PAROXETINE. [Concomitant]
     Active Substance: PAROXETINE
     Dosage: 1 DF (TABLET), PER DAY
  21. OMEPRAZOLE. [Concomitant]
     Active Substance: OMEPRAZOLE
     Dosage: 1 DF, 1X/DAY

REACTIONS (6)
  - Fatigue [Not Recovered/Not Resolved]
  - Nasopharyngitis [Recovered/Resolved]
  - Rheumatoid arthritis [Not Recovered/Not Resolved]
  - Drug ineffective [Not Recovered/Not Resolved]
  - Pyrexia [Recovered/Resolved]
  - Condition aggravated [Not Recovered/Not Resolved]

NARRATIVE: CASE EVENT DATE: 2015
